FAERS Safety Report 14646723 (Version 2)
Quarter: 2018Q2

REPORT INFORMATION
  Report Type: Report from Study
  Country: AR (occurrence: AR)
  Receive Date: 20180316
  Receipt Date: 20180415
  Transmission Date: 20180711
  Serious: Yes (Other)
  Sender: FDA-Public Use
  Company Number: PHHY2018AR041642

PATIENT
  Age: 47 Year
  Sex: Female

DRUGS (2)
  1. GILENYA [Suspect]
     Active Substance: FINGOLIMOD HYDROCHLORIDE
     Indication: MULTIPLE SCLEROSIS
     Dosage: 0.5 MG, QD
     Route: 065
     Dates: end: 20171219
  2. RIVOTRIL [Concomitant]
     Active Substance: CLONAZEPAM
     Indication: PRODUCT USED FOR UNKNOWN INDICATION
     Route: 065

REACTIONS (11)
  - Eating disorder [Unknown]
  - Malabsorption [Unknown]
  - Somnolence [Unknown]
  - Malaise [Unknown]
  - Weight decreased [Unknown]
  - Depression [Recovered/Resolved]
  - Hepatic enzyme increased [Recovered/Resolved]
  - Hepatitis toxic [Unknown]
  - Multiple sclerosis [Unknown]
  - Fear of disease [Unknown]
  - Liver disorder [Unknown]

NARRATIVE: CASE EVENT DATE: 20171219
